FAERS Safety Report 9568420 (Version 1)
Quarter: 2013Q3

REPORT INFORMATION
  Report Type: Spontaneous
  Country: US (occurrence: US)
  Receive Date: 20130930
  Receipt Date: 20130930
  Transmission Date: 20140515
  Serious: No
  Sender: FDA-Public Use
  Company Number: US-AMGEN-USASP2013062549

PATIENT
  Age: 68 Year
  Sex: Female
  Weight: 68.03 kg

DRUGS (10)
  1. ENBREL [Suspect]
     Indication: PRODUCT USED FOR UNKNOWN INDICATION
     Dosage: 50 MG, QWK
     Route: 058
  2. DIAZEPAM [Concomitant]
     Dosage: 2 MG, UNK
  3. FOLIC ACID [Concomitant]
     Dosage: UNK
  4. METHOTREXATE [Concomitant]
     Dosage: 2.5 MG, UNK
  5. CO Q 10                            /00517201/ [Concomitant]
     Dosage: UNK
  6. VITAMIN D3 [Concomitant]
     Dosage: 2000 UNIT, UNK
  7. VITAMIN B [Concomitant]
     Dosage: UNK
  8. FISH OIL [Concomitant]
     Dosage: UNK
  9. CITALOPRAM [Concomitant]
     Dosage: 10 MG, UNK
  10. HYDROCODONE / IBUPROFEN [Concomitant]
     Dosage: 10-200 MG

REACTIONS (5)
  - Fatigue [Unknown]
  - Abdominal discomfort [Unknown]
  - Injection site haemorrhage [Unknown]
  - Injection site swelling [Unknown]
  - Injection site pain [Unknown]
